FAERS Safety Report 18418296 (Version 1)
Quarter: 2020Q4

REPORT INFORMATION
  Report Type: Spontaneous
  Country: RU (occurrence: RU)
  Receive Date: 20201023
  Receipt Date: 20201023
  Transmission Date: 20210114
  Serious: Yes (Death, Other)
  Sender: FDA-Public Use
  Company Number: RU-GLAXOSMITHKLINE-RU2020EME202021

PATIENT
  Age: 41 Year
  Sex: Male

DRUGS (9)
  1. TENOFOVIR DISOPROXIL FUMARATE. [Suspect]
     Active Substance: TENOFOVIR DISOPROXIL FUMARATE
     Indication: ANTIRETROVIRAL THERAPY
     Dosage: 0.3 G
     Dates: start: 201804
  2. POLYSORB [Concomitant]
     Indication: LYMPHOEDEMA
     Dosage: UNK
     Dates: start: 2018
  3. ETHAMBUTOL [Suspect]
     Active Substance: ETHAMBUTOL HYDROCHLORIDE
     Indication: PULMONARY TUBERCULOSIS
     Dosage: 1.2 G
     Dates: start: 201804
  4. RIFAMPICIN [Suspect]
     Active Substance: RIFAMPIN
     Indication: PULMONARY TUBERCULOSIS
     Dosage: 0.6 G
     Dates: start: 201804
  5. SIMANOD [Suspect]
     Active Substance: ATAZANAVIR SULFATE
     Indication: ANTIRETROVIRAL THERAPY
     Dosage: 0.4 G
     Dates: start: 201804
  6. ACICLOVIR [Suspect]
     Active Substance: ACYCLOVIR
     Indication: LYMPHOEDEMA
     Dosage: 1 G
     Dates: start: 2018
  7. ISONIAZID. [Suspect]
     Active Substance: ISONIAZID
     Indication: PULMONARY TUBERCULOSIS
     Dosage: 0.6 G
     Dates: start: 201804
  8. AMIVIREN [Suspect]
     Active Substance: LAMIVUDINE
     Indication: ANTIRETROVIRAL THERAPY
     Dosage: 0.3 G
     Dates: start: 201804
  9. PYRAZINAMIDE. [Suspect]
     Active Substance: PYRAZINAMIDE
     Indication: PULMONARY TUBERCULOSIS
     Dosage: 1.5 G
     Dates: start: 201804

REACTIONS (42)
  - Cyanosis [Unknown]
  - Pain of skin [Unknown]
  - CD4 lymphocytes decreased [Unknown]
  - Pulmonary oedema [Unknown]
  - Total lung capacity decreased [Unknown]
  - Condition aggravated [Fatal]
  - Peripheral swelling [Unknown]
  - Aneurysmal bone cyst [Unknown]
  - Swelling face [Unknown]
  - Hypoproteinaemia [Unknown]
  - Hydrocele [Unknown]
  - Brain oedema [Unknown]
  - Conjunctivitis [Unknown]
  - Genital lesion [Unknown]
  - Renal tubular dysfunction [Unknown]
  - Osteosclerosis [Unknown]
  - Orchitis [Unknown]
  - Noninfective sialoadenitis [Unknown]
  - Thrombocytopenia [Unknown]
  - Pleural thickening [Unknown]
  - Pulmonary fibrosis [Unknown]
  - Pulmonary necrosis [Unknown]
  - Multiple organ dysfunction syndrome [Fatal]
  - Scrotal swelling [Unknown]
  - Periorbital swelling [Unknown]
  - Dyspnoea [Unknown]
  - Rales [Unknown]
  - Liver disorder [Unknown]
  - Cardiac disorder [Unknown]
  - Product dose omission issue [Unknown]
  - Treatment noncompliance [Unknown]
  - Skin lesion [Unknown]
  - Respiratory failure [Unknown]
  - Anaemia [Unknown]
  - Drug ineffective [Unknown]
  - Skin hypertrophy [Unknown]
  - Lymphoedema [Unknown]
  - Weight decreased [Unknown]
  - Penile swelling [Unknown]
  - Swelling of eyelid [Unknown]
  - Renal tubular necrosis [Unknown]
  - Gastrointestinal disorder [Unknown]

NARRATIVE: CASE EVENT DATE: 201810
